FAERS Safety Report 7589503-9 (Version None)
Quarter: 2011Q3

REPORT INFORMATION
  Report Type: 
  Country: None (occurrence: None)
  Receive Date: 20110705
  Receipt Date: 20110628
  Transmission Date: 20111222
  Serious: Yes (Hospitalization, Other)
  Sender: FDA-Public Use
  Company Number: US-JNJFOC-20110506107

PATIENT

DRUGS (8)
  1. TOPAMAX [Suspect]
     Route: 064
     Dates: start: 20091001
  2. OMEPRAZOLE [Suspect]
     Indication: MATERNAL EXPOSURE DURING PREGNANCY
     Route: 064
  3. CLINDAMYCIN [Suspect]
     Indication: MATERNAL EXPOSURE DURING PREGNANCY
     Route: 064
  4. TOPAMAX [Suspect]
     Indication: MATERNAL EXPOSURE DURING PREGNANCY
     Route: 064
     Dates: end: 20110309
  5. LEXAPRO [Suspect]
     Indication: MATERNAL EXPOSURE DURING PREGNANCY
     Route: 064
     Dates: end: 20110309
  6. ELAVIL [Concomitant]
     Route: 064
  7. AMPICILLIN SODIUM [Suspect]
     Indication: MATERNAL EXPOSURE DURING PREGNANCY
     Route: 064
  8. GENTAMICIN [Suspect]
     Indication: MATERNAL EXPOSURE DURING PREGNANCY
     Route: 064

REACTIONS (5)
  - METABOLIC ACIDOSIS [None]
  - HYPOTONIA [None]
  - APGAR SCORE LOW [None]
  - INFANTILE APNOEIC ATTACK [None]
  - BRADYCARDIA [None]
